FAERS Safety Report 5986040-X (Version None)
Quarter: 2008Q4

REPORT INFORMATION
  Report Type: 
  Country: None (occurrence: None)
  Receive Date: 20081205
  Receipt Date: 20081205
  Transmission Date: 20090506
  Serious: Yes (Hospitalization, Congenital Anomaly, Other)
  Sender: FDA-Public Use
  Company Number: None

PATIENT
  Age: 25 Year
  Sex: Female
  Weight: 83.4619 kg

DRUGS (2)
  1. LAMICTAL [Suspect]
     Indication: MOOD ALTERED
     Dosage: 25MG PER DAY ONCE DAILY PO
     Route: 048
     Dates: start: 20081120, end: 20081122
  2. TRILEPTAL [Suspect]
     Indication: MOOD ALTERED
     Dosage: 300MG PER DAY ONCE DAILY PO
     Route: 048
     Dates: start: 20081126, end: 20081204

REACTIONS (4)
  - DERMATITIS [None]
  - DIZZINESS [None]
  - DRUG HYPERSENSITIVITY [None]
  - PRESYNCOPE [None]
